FAERS Safety Report 22104349 (Version 4)
Quarter: 2023Q2

REPORT INFORMATION
  Report Type: Spontaneous
  Country: US (occurrence: US)
  Receive Date: 20230316
  Receipt Date: 20230414
  Transmission Date: 20230721
  Serious: No
  Sender: FDA-Public Use
  Company Number: US-PFIZER INC-202300112848

PATIENT
  Age: 67 Year
  Sex: Female
  Weight: 97.6 kg

DRUGS (1)
  1. FLAGYL [Suspect]
     Active Substance: METRONIDAZOLE\METRONIDAZOLE HYDROCHLORIDE
     Indication: Cellulitis
     Dosage: UNK
     Dates: start: 202303

REACTIONS (3)
  - Pruritus allergic [Unknown]
  - Dermatitis allergic [Unknown]
  - Off label use [Unknown]

NARRATIVE: CASE EVENT DATE: 20230301
